FAERS Safety Report 7291993-6 (Version None)
Quarter: 2011Q1

REPORT INFORMATION
  Report Type: 
  Country: None (occurrence: None)
  Receive Date: 20110214
  Receipt Date: 20110201
  Transmission Date: 20110831
  Serious: Yes (Hospitalization)
  Sender: FDA-Public Use
  Company Number: US-MYLANLABS-2011S1002267

PATIENT
  Age: 60 Year
  Sex: Female

DRUGS (3)
  1. TRASTUZUMAB [Concomitant]
     Indication: BREAST CANCER
     Dosage: EVERY WEEK
     Route: 065
  2. CARBOPLATIN [Suspect]
     Indication: BREAST CANCER
     Dosage: EVERY 3 WEEKS
     Route: 065
  3. DOCETAXEL [Suspect]
     Indication: BREAST CANCER
     Dosage: EVERY 3 WEEKS
     Route: 065

REACTIONS (1)
  - PANCREATITIS ACUTE [None]
